FAERS Safety Report 25999096 (Version 1)
Quarter: 2025Q4

REPORT INFORMATION
  Report Type: Report from Study
  Country: US (occurrence: US)
  Receive Date: 20251105
  Receipt Date: 20251105
  Transmission Date: 20260118
  Serious: Yes (Other)
  Sender: ABBVIE
  Company Number: US-ABBVIE-6527925

PATIENT
  Age: 60 Year
  Sex: Female

DRUGS (1)
  1. RINVOQ [Suspect]
     Active Substance: UPADACITINIB
     Indication: Colitis ulcerative
     Route: 048
     Dates: start: 20250104

REACTIONS (11)
  - Dental implantation [Unknown]
  - Localised infection [Recovered/Resolved]
  - Cyst [Unknown]
  - Weight decreased [Unknown]
  - Nerve injury [Unknown]
  - Skin laceration [Unknown]
  - Erythema [Unknown]
  - Peripheral swelling [Unknown]
  - Pain in extremity [Unknown]
  - Pain in jaw [Unknown]
  - Oropharyngeal pain [Unknown]

NARRATIVE: CASE EVENT DATE: 20250101
